FAERS Safety Report 15554781 (Version 6)
Quarter: 2019Q3

REPORT INFORMATION
  Report Type: Spontaneous
  Country: CA (occurrence: CA)
  Receive Date: 20181026
  Receipt Date: 20190709
  Transmission Date: 20191004
  Serious: Yes (Hospitalization, Other)
  Sender: FDA-Public Use
  Company Number: CA-CELLTRION INC.-2017CA004423

PATIENT

DRUGS (16)
  1. INFLECTRA [Suspect]
     Active Substance: INFLIXIMAB-DYYB
     Dosage: 270 MG (3MG/KG), EVERY 0, 2, 6 WEEKS THEN EVERY 8 WEEKS
     Route: 042
     Dates: start: 20170920
  2. ACETAMINOPHEN. [Concomitant]
     Active Substance: ACETAMINOPHEN
     Indication: PREMEDICATION
     Dosage: 650 MG, UNK
     Route: 048
  3. DIPHENHYDRAMINE. [Concomitant]
     Active Substance: DIPHENHYDRAMINE
     Indication: PREMEDICATION
     Dosage: 50 MG
     Route: 048
  4. INFLECTRA [Suspect]
     Active Substance: INFLIXIMAB-DYYB
     Indication: RHEUMATOID ARTHRITIS
     Dosage: 300 MG, EVERY 0,2,6 WEEKS THEN EVERY 8 WEEKS FOR 12 MONTHS
     Route: 042
     Dates: start: 20160825, end: 20170524
  5. LOSEC [Concomitant]
     Active Substance: OMEPRAZOLE
     Dosage: UNK
  6. INFLECTRA [Suspect]
     Active Substance: INFLIXIMAB-DYYB
     Dosage: UNK
     Route: 042
     Dates: start: 20181031
  7. INFLECTRA [Suspect]
     Active Substance: INFLIXIMAB-DYYB
     Dosage: 270 MG, EVERY 8 WEEKS;
     Route: 042
     Dates: start: 20181220
  8. HYDROCORTISONE. [Concomitant]
     Active Substance: HYDROCORTISONE
     Indication: PREMEDICATION
     Dosage: 100 MG, UNK
     Route: 042
  9. INFLECTRA [Suspect]
     Active Substance: INFLIXIMAB-DYYB
     Dosage: 272 MG, EVERY 8 WEEKS
     Route: 042
     Dates: start: 2017
  10. INFLECTRA [Suspect]
     Active Substance: INFLIXIMAB-DYYB
     Dosage: UNK, EVERY 8 WEEKS
     Route: 042
     Dates: start: 20180821, end: 20181016
  11. INFLECTRA [Suspect]
     Active Substance: INFLIXIMAB-DYYB
     Dosage: UNK
     Route: 042
     Dates: start: 20190219
  12. INFLECTRA [Suspect]
     Active Substance: INFLIXIMAB-DYYB
     Dosage: UNK
     Route: 042
     Dates: start: 20190415
  13. LEFLUNOMIDE. [Concomitant]
     Active Substance: LEFLUNOMIDE
     Indication: RHEUMATOID ARTHRITIS
     Dosage: 20 MG, 1X/DAY
     Route: 048
     Dates: start: 20170320
  14. PREDNISONE. [Concomitant]
     Active Substance: PREDNISONE
     Indication: ARTHRITIS
     Dosage: UNK
  15. INFLECTRA [Suspect]
     Active Substance: INFLIXIMAB-DYYB
     Dosage: 270 MG, EVERY 8 WEEKS
     Route: 042
     Dates: start: 20181220
  16. INFLECTRA [Suspect]
     Active Substance: INFLIXIMAB-DYYB
     Dosage: 272 MG, EVERY 8 WEEKS
     Route: 042
     Dates: start: 20171115

REACTIONS (16)
  - Dyspepsia [Not Recovered/Not Resolved]
  - Oropharyngeal pain [Unknown]
  - Product use issue [Unknown]
  - Retinal haemorrhage [Recovered/Resolved]
  - Diarrhoea [Recovered/Resolved]
  - Blood pressure fluctuation [Unknown]
  - Nasopharyngitis [Unknown]
  - Vertigo [Not Recovered/Not Resolved]
  - Off label use [Unknown]
  - Retinal tear [Recovered/Resolved]
  - Food poisoning [Unknown]
  - Inflammation [Not Recovered/Not Resolved]
  - Rhinorrhoea [Unknown]
  - Pyrexia [Unknown]
  - Therapeutic product effect incomplete [Unknown]
  - Asthenia [Not Recovered/Not Resolved]

NARRATIVE: CASE EVENT DATE: 201705
